FAERS Safety Report 6555003-8 (Version None)
Quarter: 2010Q1

REPORT INFORMATION
  Report Type: 
  Country: None (occurrence: None)
  Receive Date: 20100126
  Receipt Date: 20100126
  Transmission Date: 20100710
  Serious: Yes (Other)
  Sender: FDA-Public Use
  Company Number: None

PATIENT
  Age: 63 Year
  Sex: Female
  Weight: 72.5755 kg

DRUGS (4)
  1. LEVAQUIN [Suspect]
     Indication: BLOOD CULTURE POSITIVE
  2. LEVAQUIN [Suspect]
     Indication: DIVERTICULUM INTESTINAL
  3. LEVAQUIN [Suspect]
     Indication: STAPHYLOCOCCAL INFECTION
  4. LEVAQUIN [Suspect]
     Indication: URINARY TRACT DISORDER

REACTIONS (17)
  - ANXIETY [None]
  - ARTHRALGIA [None]
  - CHILLS [None]
  - DIZZINESS [None]
  - ERYTHEMA [None]
  - FACE OEDEMA [None]
  - FATIGUE [None]
  - GAIT DISTURBANCE [None]
  - HALLUCINATION [None]
  - HEADACHE [None]
  - INSOMNIA [None]
  - MUSCLE TIGHTNESS [None]
  - MUSCULOSKELETAL PAIN [None]
  - NAUSEA [None]
  - NIGHT SWEATS [None]
  - NIGHTMARE [None]
  - PAIN IN EXTREMITY [None]
